FAERS Safety Report 6819373-5 (Version None)
Quarter: 2010Q3

REPORT INFORMATION
  Report Type: 
  Country: None (occurrence: None)
  Receive Date: 20100707
  Receipt Date: 20100629
  Transmission Date: 20110219
  Serious: Yes (Other)
  Sender: FDA-Public Use
  Company Number: US-SANOFI-AVENTIS-2010SA037854

PATIENT
  Sex: Female

DRUGS (1)
  1. PLAVIX [Suspect]
     Indication: ANTIPHOSPHOLIPID SYNDROME
     Route: 048
     Dates: start: 20080101, end: 20100620

REACTIONS (7)
  - ARTHRALGIA [None]
  - CONTUSION [None]
  - HAEMORRHAGE [None]
  - LEFT VENTRICULAR HYPERTROPHY [None]
  - MITRAL VALVE STENOSIS [None]
  - MYALGIA [None]
  - OFF LABEL USE [None]
